FAERS Safety Report 8760350 (Version 1)
Quarter: 2012Q4

REPORT INFORMATION
  Report Type: Spontaneous
  Country: US (occurrence: None)
  Receive Date: 20120829
  Receipt Date: 20120829
  Transmission Date: 20130627
  Serious: Yes (Other)
  Sender: FDA-Public Use
  Company Number: None

PATIENT
  Age: 31 Year
  Sex: Female
  Weight: 62.6 kg

DRUGS (1)
  1. PREVACID [Suspect]
     Dosage: one daily po
     Route: 048
     Dates: start: 20111219, end: 20120228

REACTIONS (1)
  - Drug ineffective [None]
